FAERS Safety Report 11891121 (Version 1)
Quarter: 2016Q1

REPORT INFORMATION
  Report Type: Spontaneous
  Country: FR (occurrence: FR)
  Receive Date: 20160106
  Receipt Date: 20160106
  Transmission Date: 20160526
  Serious: Yes (Death)
  Sender: FDA-Public Use
  Company Number: FR-ROCHE-1689446

PATIENT
  Age: 76 Year
  Sex: Male

DRUGS (6)
  1. MABTHERA [Suspect]
     Active Substance: RITUXIMAB
     Indication: NON-HODGKIN^S LYMPHOMA
     Route: 042
     Dates: start: 20151013
  2. VINCRISTINE [Concomitant]
     Active Substance: VINCRISTINE
     Indication: NON-HODGKIN^S LYMPHOMA
     Dosage: LAST CYCLE ON 28/SEP/2015
     Route: 065
     Dates: end: 20150928
  3. CYCLOPHOSPHAMIDE MONOHYDRATE [Concomitant]
     Active Substance: CYCLOPHOSPHAMIDE
     Indication: NON-HODGKIN^S LYMPHOMA
     Dosage: LAST CYCLE ON 28/SEP/2015
     Route: 065
     Dates: end: 20150928
  4. DOXORUBICIN [Concomitant]
     Active Substance: DOXORUBICIN
     Indication: NON-HODGKIN^S LYMPHOMA
     Dosage: LAST CYCLE ON 28/SEP/2015
     Route: 065
     Dates: end: 20150928
  5. PREDNISOLONE. [Concomitant]
     Active Substance: PREDNISOLONE
     Indication: NON-HODGKIN^S LYMPHOMA
     Dosage: LAST CYCLE ON 28/SEP/2015
     Route: 065
     Dates: end: 20150928
  6. RITUXIMAB [Concomitant]
     Active Substance: RITUXIMAB
     Indication: NON-HODGKIN^S LYMPHOMA
     Dosage: LAST CYCLE ON 28/SEP/2015
     Route: 065
     Dates: end: 20150928

REACTIONS (2)
  - Hepatitis fulminant [Fatal]
  - Hepatitis B [Fatal]

NARRATIVE: CASE EVENT DATE: 201511
